FAERS Safety Report 8517060-9 (Version None)
Quarter: 2012Q3

REPORT INFORMATION
  Report Type: 
  Country: None (occurrence: None)
  Receive Date: 20120718
  Receipt Date: 20120716
  Transmission Date: 20120928
  Serious: Yes (Death)
  Sender: FDA-Public Use
  Company Number: GB-ABBOTT-12P-167-0956759-00

PATIENT
  Sex: Female
  Weight: 71 kg

DRUGS (2)
  1. UNKNOWN STEROIDS [Concomitant]
     Indication: PRODUCT USED FOR UNKNOWN INDICATION
  2. HUMIRA [Suspect]
     Indication: RHEUMATOID ARTHRITIS
     Route: 058
     Dates: start: 20070405, end: 20071215

REACTIONS (3)
  - CEREBROVASCULAR DISORDER [None]
  - MYOCARDIAL ISCHAEMIA [None]
  - PNEUMONIA [None]
